FAERS Safety Report 10446467 (Version 3)
Quarter: 2014Q4

REPORT INFORMATION
  Report Type: Spontaneous
  Country: US (occurrence: US)
  Receive Date: 20140911
  Receipt Date: 20141028
  Transmission Date: 20150528
  Serious: Yes (Other)
  Sender: FDA-Public Use
  Company Number: US-ROCHE-1460153

PATIENT
  Age: 51 Year
  Sex: Female

DRUGS (4)
  1. KLONOPIN [Suspect]
     Active Substance: CLONAZEPAM
     Indication: ANXIETY
  2. KLONOPIN [Suspect]
     Active Substance: CLONAZEPAM
     Indication: CYSTITIS INTERSTITIAL
     Dosage: 2 TABLETS PO EVERY MORNING
     Route: 048
     Dates: start: 1993, end: 2014
  3. CLONAZEPAM. [Suspect]
     Active Substance: CLONAZEPAM
     Indication: CYSTITIS INTERSTITIAL
     Dosage: 2MG- 2 TABLETS EVERY MORNING.
     Route: 048
  4. TAMOXIFEN [Concomitant]
     Active Substance: TAMOXIFEN
     Indication: BREAST CANCER

REACTIONS (11)
  - Vomiting [Recovered/Resolved]
  - Urticaria [Unknown]
  - Tremor [Not Recovered/Not Resolved]
  - Bladder spasm [Not Recovered/Not Resolved]
  - Breast cancer [Recovering/Resolving]
  - Withdrawal syndrome [Unknown]
  - Malaise [Unknown]
  - Panic reaction [Unknown]
  - Cystitis [Unknown]
  - Panic attack [Not Recovered/Not Resolved]
  - Drug ineffective [Unknown]

NARRATIVE: CASE EVENT DATE: 2014
